FAERS Safety Report 8309461-9 (Version None)
Quarter: 2012Q2

REPORT INFORMATION
  Report Type: 
  Country: None (occurrence: None)
  Receive Date: 20120425
  Receipt Date: 20120418
  Transmission Date: 20120825
  Serious: Yes (Hospitalization)
  Sender: FDA-Public Use
  Company Number: US-TEVA-334220USA

PATIENT
  Age: 20 Year
  Sex: Female

DRUGS (2)
  1. AZITHROMYCIN [Suspect]
  2. BENZONATATE [Suspect]

REACTIONS (4)
  - ULCER [None]
  - BLOOD BLISTER [None]
  - EYE IRRITATION [None]
  - DRY EYE [None]
